FAERS Safety Report 9421749 (Version 1)
Quarter: 2013Q3

REPORT INFORMATION
  Report Type: Spontaneous
  Country: BE (occurrence: BE)
  Receive Date: 20130726
  Receipt Date: 20130726
  Transmission Date: 20140515
  Serious: Yes (Hospitalization)
  Sender: FDA-Public Use
  Company Number: BE-ASTRAZENECA-2013SE54066

PATIENT
  Age: 22940 Day
  Sex: Male
  Weight: 82 kg

DRUGS (4)
  1. NEXIAM [Suspect]
     Indication: HIATUS HERNIA
     Route: 048
     Dates: start: 2007, end: 2013
  2. NEXIAM [Suspect]
     Indication: GASTROOESOPHAGEAL REFLUX DISEASE
     Route: 048
     Dates: start: 2007, end: 2013
  3. NOBITEN [Concomitant]
     Indication: HYPERTENSION
     Route: 048
  4. COVERAM [Concomitant]
     Indication: HYPERTENSION
     Dosage: DAILY
     Route: 048

REACTIONS (5)
  - Hypocalcaemia [Recovering/Resolving]
  - Hypokalaemia [Recovering/Resolving]
  - Cerebellar syndrome [Recovering/Resolving]
  - Epilepsy [Recovering/Resolving]
  - Hypomagnesaemia [Recovering/Resolving]
